FAERS Safety Report 10242141 (Version 1)
Quarter: 2014Q2

REPORT INFORMATION
  Report Type: Spontaneous
  Country: US (occurrence: US)
  Receive Date: 20140617
  Receipt Date: 20140617
  Transmission Date: 20141212
  Serious: No
  Sender: FDA-Public Use
  Company Number: US-PFIZER INC-2014161309

PATIENT
  Age: 54 Year
  Sex: Male

DRUGS (1)
  1. TORISEL [Suspect]
     Dosage: 25 MG, UNK

REACTIONS (2)
  - Pyrexia [Unknown]
  - Infection [Unknown]
